FAERS Safety Report 7425940-0 (Version None)
Quarter: 2011Q2

REPORT INFORMATION
  Report Type: 
  Country: None (occurrence: None)
  Receive Date: 20110420
  Receipt Date: 20091031
  Transmission Date: 20111010
  Serious: Yes (Death, Other)
  Sender: FDA-Public Use
  Company Number: US-BAYER-200937735NA

PATIENT
  Age: 69 Year
  Sex: Male
  Weight: 93.424 kg

DRUGS (9)
  1. MANNITOL [Concomitant]
     Route: 042
  2. HEPARIN [Concomitant]
     Dosage: 10,000 UNITS
     Route: 042
  3. ANCEF [Concomitant]
     Dosage: 2 G, UNK
     Route: 042
  4. LASIX [Concomitant]
     Dosage: 20 MG, UNK
     Route: 042
  5. GENTAMICIN [Concomitant]
     Dosage: 80 MG, UNK
     Route: 042
  6. TRASYLOL [Suspect]
     Indication: CORONARY ARTERY BYPASS
     Dosage: 200 CC. [APROTININ, 4 UNITS (600 ML) CHARGED]
     Route: 042
     Dates: start: 20020115
  7. DOPAMINE HCL [Concomitant]
     Dosage: 2 G, UNK
     Route: 042
  8. ASPIRIN [Concomitant]
     Dosage: 1 DAILY
     Route: 048
  9. PROTAMINE SULFATE [Concomitant]
     Dosage: 1400 MG, UNK
     Route: 042

REACTIONS (6)
  - RENAL FAILURE [None]
  - DEATH [None]
  - PAIN [None]
  - UNEVALUABLE EVENT [None]
  - INJURY [None]
  - RENAL INJURY [None]
